FAERS Safety Report 4597374-8 (Version None)
Quarter: 2005Q1

REPORT INFORMATION
  Report Type: 
  Country: None (occurrence: None)
  Receive Date: 20050303
  Receipt Date: 20040929
  Transmission Date: 20050727
  Serious: No
  Sender: FDA-Public Use
  Company Number: US-GLAXOSMITHKLINE-A0527794A

PATIENT
  Age: 75 Year
  Sex: Male

DRUGS (11)
  1. REQUIP [Suspect]
     Indication: ILL-DEFINED DISORDER
     Dosage: .5MG THREE TIMES PER DAY
     Route: 048
     Dates: start: 20040928
  2. COUMADIN [Concomitant]
  3. DIGITEK [Concomitant]
  4. CALCIUM CHANNEL BLOCKER [Concomitant]
  5. THYROID TAB [Concomitant]
  6. K LYTE [Concomitant]
  7. IRON SUPPLEMENT [Concomitant]
  8. PROCRIT [Concomitant]
  9. DIOVAN [Concomitant]
  10. TPN [Concomitant]
  11. MACROBID [Concomitant]

REACTIONS (1)
  - DRUG INEFFECTIVE [None]
